FAERS Safety Report 6856246-6 (Version None)
Quarter: 2010Q3

REPORT INFORMATION
  Report Type: 
  Country: None (occurrence: None)
  Receive Date: 20100719
  Receipt Date: 20100708
  Transmission Date: 20110219
  Serious: Yes (Hospitalization, Other)
  Sender: FDA-Public Use
  Company Number: IE-JNJFOC-20100305072

PATIENT
  Sex: Male

DRUGS (5)
  1. REMICADE [Suspect]
     Indication: CROHN'S DISEASE
     Dosage: ONLY 1 DOSE GIVEN
     Route: 042
  2. CIPROFLOXACIN [Concomitant]
     Route: 042
  3. FLAGYL [Concomitant]
     Route: 042
  4. HYDROCORTISONE [Concomitant]
     Route: 042
  5. ASACOLON [Concomitant]

REACTIONS (3)
  - CELLULITIS [None]
  - HOSPITALISATION [None]
  - SEPTIC EMBOLUS [None]
